FAERS Safety Report 8468912-X (Version None)
Quarter: 2012Q2

REPORT INFORMATION
  Report Type: 
  Country: None (occurrence: None)
  Receive Date: 20120626
  Receipt Date: 20110427
  Transmission Date: 20120825
  Serious: Yes (Other)
  Sender: FDA-Public Use
  Company Number: US-ROCHE-773997

PATIENT
  Sex: Female
  Weight: 68 kg

DRUGS (9)
  1. LEVOTHYROXINE [Concomitant]
  2. GLUCOSAMINE [Concomitant]
  3. ACETAMINOPHEN [Concomitant]
  4. CALCIUM [Concomitant]
  5. BONIVA [Suspect]
     Indication: OSTEOPOROSIS
     Route: 048
     Dates: start: 20070101, end: 20110209
  6. FLAXSEED [Concomitant]
  7. CHONDROITIN [Concomitant]
  8. ATIVAN [Concomitant]
  9. MELATONIN [Concomitant]

REACTIONS (4)
  - FALL [None]
  - PAIN [None]
  - HIP FRACTURE [None]
  - DRUG DOSE OMISSION [None]
